FAERS Safety Report 7063249-8 (Version None)
Quarter: 2010Q4

REPORT INFORMATION
  Report Type: 
  Country: None (occurrence: None)
  Receive Date: 20101026
  Receipt Date: 20100624
  Transmission Date: 20110411
  Serious: No
  Sender: FDA-Public Use
  Company Number: US-PFIZER INC-2010080021

PATIENT
  Sex: Female
  Weight: 47.619 kg

DRUGS (7)
  1. LIPITOR [Suspect]
     Indication: BLOOD CHOLESTEROL INCREASED
     Dosage: 10 MG, DAILY
     Route: 048
     Dates: start: 20080701
  2. ACETYLSALICYLIC ACID [Concomitant]
     Dosage: UNK MG, DAILY
     Route: 048
  3. PREMPRO [Concomitant]
     Indication: HORMONE REPLACEMENT THERAPY
     Dosage: UNK, ALTERNATE DAY
  4. VITAMIN D [Concomitant]
     Dosage: 10000 IU, ALTERNATE DAY
  5. LEXAPRO [Concomitant]
     Dosage: 10 MG, DAILY
     Route: 048
  6. SUPER VITAMIN B COMPLEX [Concomitant]
     Dosage: UNK, DAILY
  7. RANITIDINE [Concomitant]
     Indication: GASTRIC DISORDER
     Dosage: UNK, AS NEEDED
     Route: 048

REACTIONS (1)
  - BACK INJURY [None]
